FAERS Safety Report 9781097 (Version 1)
Quarter: 2013Q4

REPORT INFORMATION
  Report Type: Spontaneous
  Country: US (occurrence: None)
  Receive Date: 20131223
  Receipt Date: 20131223
  Transmission Date: 20140711
  Serious: Yes (Hospitalization)
  Sender: FDA-Public Use
  Company Number: None

PATIENT
  Age: 75 Year
  Sex: Male
  Weight: 81.65 kg

DRUGS (1)
  1. SORAFENIB [Suspect]
     Dosage: 1 PILL TWICE A DAY  TWICE DAILY  TAKEN BY MOUTH
     Route: 048

REACTIONS (6)
  - Malaise [None]
  - Local swelling [None]
  - Joint swelling [None]
  - Rheumatoid arthritis [None]
  - Blister [None]
  - Pain [None]
